FAERS Safety Report 7592866-1 (Version None)
Quarter: 2011Q3

REPORT INFORMATION
  Report Type: 
  Country: None (occurrence: None)
  Receive Date: 20110706
  Receipt Date: 20110630
  Transmission Date: 20111222
  Serious: Yes (Hospitalization, Other)
  Sender: FDA-Public Use
  Company Number: US-GILEAD-2011-0041083

PATIENT
  Sex: Male
  Weight: 67.192 kg

DRUGS (3)
  1. LETAIRIS [Suspect]
     Indication: PULMONARY HYPERTENSION
     Route: 048
     Dates: start: 20080128
  2. LETAIRIS [Suspect]
     Indication: EMBOLISM
  3. REVATIO [Concomitant]

REACTIONS (3)
  - RIGHT VENTRICULAR FAILURE [None]
  - ASCITES [None]
  - DRUG INEFFECTIVE [None]
